FAERS Safety Report 22343368 (Version 1)
Quarter: 2023Q2

REPORT INFORMATION
  Report Type: Spontaneous
  Country: EG (occurrence: EG)
  Receive Date: 20230519
  Receipt Date: 20230519
  Transmission Date: 20230722
  Serious: Yes (Hospitalization, Other)
  Sender: FDA-Public Use
  Company Number: EG-NOVOPROD-1063275

PATIENT
  Age: 788 Month
  Sex: Male
  Weight: 103 kg

DRUGS (7)
  1. INSULIN ASPART [Suspect]
     Active Substance: INSULIN ASPART
     Indication: Type 2 diabetes mellitus
     Dosage: 100 IU, QD
     Route: 058
  2. HYDROCHLOROTHIAZIDE\IRBESARTAN [Concomitant]
     Active Substance: HYDROCHLOROTHIAZIDE\IRBESARTAN
     Indication: Hypertension
     Dosage: 300/25 MG ONCE DAILY
     Route: 048
  3. .ALPHA.-LIPOIC ACID [Concomitant]
     Active Substance: .ALPHA.-LIPOIC ACID
     Indication: Vitamin supplementation
     Dosage: 600 COMPLEX,TWICE DAILY (ONE MORNING AND ONE EVENING)()
     Route: 048
  4. PERINDOPRIL ERBUMINE [Concomitant]
     Active Substance: PERINDOPRIL ERBUMINE
     Indication: Hypertension
     Dosage: 5 MG, QD
     Route: 048
  5. BISOPROLOL FUMARATE [Concomitant]
     Active Substance: BISOPROLOL FUMARATE
     Indication: Hypertension
     Dosage: 5 MG, QD
     Route: 048
  6. JUSPRIN [Concomitant]
     Indication: Thrombosis
     Dosage: ONCE DAILY
     Route: 048
  7. CRESTOR [Concomitant]
     Active Substance: ROSUVASTATIN CALCIUM
     Indication: Hypercholesterolaemia
     Dosage: ONCE DAILY
     Route: 048

REACTIONS (3)
  - Leg amputation [Recovered/Resolved with Sequelae]
  - Accident [Unknown]
  - Weight increased [Unknown]

NARRATIVE: CASE EVENT DATE: 20150101
